FAERS Safety Report 4753245-5 (Version None)
Quarter: 2005Q3

REPORT INFORMATION
  Report Type: 
  Country: None (occurrence: None)
  Receive Date: 20050826
  Receipt Date: 20050728
  Transmission Date: 20060218
  Serious: Yes (Other)
  Sender: FDA-Public Use
  Company Number: PHFR2005GB02604

PATIENT
  Age: 50 Year
  Sex: Female

DRUGS (5)
  1. CLOZARIL [Suspect]
     Indication: SCHIZOPHRENIA
     Dosage: UNK, UNK
     Route: 065
     Dates: start: 20050718
  2. SERTRALINE HCL [Concomitant]
     Indication: DEPRESSION
     Dosage: 200 UNK/DAY
     Route: 048
  3. LAMOTRIGINE [Concomitant]
     Indication: AFFECTIVE DISORDER
     Dosage: 100 UNK/DAY
     Route: 048
  4. LANSOPRAZOLE [Concomitant]
     Dosage: 30 UNK/DAY
     Route: 048
  5. ZOPICLONE [Concomitant]
     Dosage: 7.5 UNK/DAY
     Route: 048

REACTIONS (1)
  - ELECTROCARDIOGRAM QT CORRECTED INTERVAL PROLONGED [None]
